FAERS Safety Report 8595571-8 (Version None)
Quarter: 2012Q3

REPORT INFORMATION
  Report Type: 
  Country: None (occurrence: None)
  Receive Date: 20120815
  Receipt Date: 20120806
  Transmission Date: 20120928
  Serious: Yes (Other)
  Sender: FDA-Public Use
  Company Number: KR-TEVA-352487ISR

PATIENT
  Age: 51 Year
  Sex: Male

DRUGS (2)
  1. DOXORUBICIN HYDROCHLORIDE [Suspect]
     Indication: HEPATIC NEOPLASM MALIGNANT NON-RESECTABLE
     Dosage: 25-70MG EVERY 1-2 MONTHS
     Route: 013
  2. LIPIODOL [Concomitant]
     Dosage: 5-10ML
     Route: 065

REACTIONS (1)
  - HEPATITIS C [None]
